FAERS Safety Report 24216754 (Version 1)
Quarter: 2024Q3

REPORT INFORMATION
  Report Type: Spontaneous
  Country: US (occurrence: US)
  Receive Date: 20240816
  Receipt Date: 20240816
  Transmission Date: 20241016
  Serious: No
  Sender: ROCHE
  Company Number: US-ROCHE-10000052655

PATIENT
  Age: 14 Year
  Sex: Male

DRUGS (10)
  1. RITUXIMAB [Suspect]
     Active Substance: RITUXIMAB
     Indication: Prophylaxis against transplant rejection
     Route: 042
  2. MYCOPHENOLATE MOFETIL [Suspect]
     Active Substance: MYCOPHENOLATE MOFETIL
     Indication: Prophylaxis against transplant rejection
     Route: 065
  3. CYCLOPHOSPHAMIDE [Suspect]
     Active Substance: CYCLOPHOSPHAMIDE
     Indication: Prophylaxis against transplant rejection
     Route: 065
  4. TACROLIMUS [Suspect]
     Active Substance: TACROLIMUS
     Indication: Prophylaxis against transplant rejection
     Route: 065
  5. DECITABINE [Suspect]
     Active Substance: DECITABINE
     Indication: Prophylaxis against transplant rejection
     Route: 065
  6. ELTROMBOPAG [Suspect]
     Active Substance: ELTROMBOPAG
     Indication: Prophylaxis against transplant rejection
     Route: 048
  7. ROMIPLOSTIM [Suspect]
     Active Substance: ROMIPLOSTIM
     Indication: Prophylaxis against transplant rejection
     Route: 058
  8. DECITABINE [Suspect]
     Active Substance: DECITABINE
     Indication: Prophylaxis against transplant rejection
     Route: 042
  9. BLINATUMOMAB [Concomitant]
     Active Substance: BLINATUMOMAB
  10. AVATROMBOPAG [Concomitant]
     Active Substance: AVATROMBOPAG

REACTIONS (2)
  - Enterobacter bacteraemia [Unknown]
  - Viraemia [Unknown]
